FAERS Safety Report 9900277 (Version 2)
Quarter: 2014Q2

REPORT INFORMATION
  Report Type: Spontaneous
  Country: BR (occurrence: BR)
  Receive Date: 20140215
  Receipt Date: 20140613
  Transmission Date: 20141212
  Serious: Yes (Hospitalization)
  Sender: FDA-Public Use
  Company Number: BR-ASTRAZENECA-2014SE09819

PATIENT
  Age: 75 Year
  Sex: Male
  Weight: 68 kg

DRUGS (7)
  1. FORASEQ [Suspect]
     Indication: ASTHMA
     Route: 055
  2. BRILINTA [Suspect]
     Indication: CHEST PAIN
     Route: 048
     Dates: start: 201310, end: 201401
  3. OMEPRAZOLE [Suspect]
     Indication: GASTROOESOPHAGEAL REFLUX DISEASE
     Dosage: DAILY
     Route: 048
     Dates: start: 201310
  4. ENALAPRIL MALEATE [Concomitant]
     Indication: HYPERTENSION
     Route: 048
  5. SIMVASTATIN [Concomitant]
     Indication: BLOOD CHOLESTEROL INCREASED
     Route: 048
  6. VERTIX [Concomitant]
     Indication: TINNITUS
     Route: 048
  7. CLOPIDOGREL [Concomitant]
     Route: 048
     Dates: start: 201401

REACTIONS (3)
  - Chest pain [Recovered/Resolved]
  - Gastrooesophageal reflux disease [Unknown]
  - Hyperglycaemia [Not Recovered/Not Resolved]
